FAERS Safety Report 10063542 (Version 1)
Quarter: 2014Q1

REPORT INFORMATION
  Report Type: Spontaneous
  Country: US (occurrence: None)
  Receive Date: 20140328
  Receipt Date: 20140328
  Transmission Date: 20141002
  Serious: Yes (Hospitalization, Other)
  Sender: FDA-Public Use
  Company Number: PHEH2013US024997

PATIENT
  Sex: 0

DRUGS (9)
  1. AFINITOR (RAD) UNKNOWN [Suspect]
     Indication: TUBEROUS SCLEROSIS
     Route: 048
     Dates: end: 20131130
  2. KLONOPIN (CLONAZEPAM) (TABLETS) [Concomitant]
  3. DILANTIN (PHENYTOIN SODIUM) [Concomitant]
  4. KEPRA (LEVETIRACETAM) [Concomitant]
  5. ATIVAN (LORAZEPAM) [Concomitant]
  6. DIASTAT (ATROPA BELLADONNA TINCTURE, CHLOROFORM AND MORPHINE TINCTURE, KAOLIN, PECTIN, PHTHALYLSULFATHIAZOLE, STREPTOMYCIN)? [Concomitant]
  7. GEODON (ZIPRASIDONE HYDROCHLORIDE) [Concomitant]
  8. FLAGYL (METRONIDAZOLE BENZOATE) [Concomitant]
  9. VANCOMYCIN (VANCOMYCIN) [Concomitant]

REACTIONS (3)
  - Vomiting [None]
  - Diarrhoea [None]
  - Clostridium test positive [None]
